FAERS Safety Report 15719902 (Version 2)
Quarter: 2022Q3

REPORT INFORMATION
  Report Type: Spontaneous
  Country: DE (occurrence: DE)
  Receive Date: 20181213
  Receipt Date: 20220926
  Transmission Date: 20221026
  Serious: Yes (Life-Threatening, Hospitalization)
  Sender: FDA-Public Use
  Company Number: DE-ROCHE-1512284

PATIENT
  Age: 36 Year
  Sex: Female
  Weight: 58 kg

DRUGS (3)
  1. RIBAVIRIN [Suspect]
     Active Substance: RIBAVIRIN
     Indication: Chronic hepatitis C
     Dosage: 2 CAPSULES PER DAY
     Route: 048
     Dates: start: 20140711, end: 20140922
  2. PEGINTERFERON ALFA-2A [Suspect]
     Active Substance: PEGINTERFERON ALFA-2A
     Indication: Chronic hepatitis C
     Dosage: 180 MICROGRAM, QW
     Route: 058
     Dates: start: 20140711, end: 20140922
  3. SOFOSBUVIR [Suspect]
     Active Substance: SOFOSBUVIR
     Indication: Chronic hepatitis C
     Dosage: 400 MILLIGRAM, QD
     Route: 048
     Dates: start: 20140711, end: 20140922

REACTIONS (4)
  - Vision blurred [Unknown]
  - Influenza like illness [Recovered/Resolved]
  - Pancytopenia [Recovering/Resolving]
  - Alopecia [Unknown]

NARRATIVE: CASE EVENT DATE: 20140711
